FAERS Safety Report 12578163 (Version 1)
Quarter: 2016Q3

REPORT INFORMATION
  Report Type: Spontaneous
  Country: US (occurrence: None)
  Receive Date: 20160720
  Receipt Date: 20160720
  Transmission Date: 20161109
  Serious: Yes (Other)
  Sender: FDA-Public Use
  Company Number: None

PATIENT
  Age: 32 Year
  Sex: Female
  Weight: 53.52 kg

DRUGS (3)
  1. AMLODAPINE [Concomitant]
  2. PERPHENAZINE, 12 MG [Suspect]
     Active Substance: PERPHENAZINE
     Indication: ANXIETY
     Dosage: 1 TABLET(S) AT BEDTIME TAKEN BY MOUTH
     Route: 048
     Dates: start: 20160706, end: 20160712
  3. ZOLOFT [Concomitant]
     Active Substance: SERTRALINE HYDROCHLORIDE

REACTIONS (3)
  - Breast swelling [None]
  - Lactation disorder [None]
  - Breast pain [None]

NARRATIVE: CASE EVENT DATE: 20160706
